FAERS Safety Report 8595769 (Version 3)
Quarter: 2014Q1

REPORT INFORMATION
  Report Type: Spontaneous
  Country: US (occurrence: US)
  Receive Date: 20120605
  Receipt Date: 20140123
  Transmission Date: 20141002
  Serious: Yes (Hospitalization, Disabling)
  Sender: FDA-Public Use
  Company Number: US-ASTRAZENECA-2012SE35453

PATIENT
  Age: 55 Year
  Sex: Male

DRUGS (49)
  1. NEXIUM [Suspect]
     Indication: GASTROOESOPHAGEAL REFLUX DISEASE
     Dosage: AS NEEDED, ONCE A DAY
     Route: 048
  2. NEXIUM [Suspect]
     Indication: HIATUS HERNIA
     Dosage: AS NEEDED, ONCE A DAY
     Route: 048
  3. NEXIUM [Suspect]
     Indication: GASTROOESOPHAGEAL REFLUX DISEASE
     Route: 048
     Dates: start: 2000, end: 2012
  4. NEXIUM [Suspect]
     Indication: HIATUS HERNIA
     Route: 048
     Dates: start: 2000, end: 2012
  5. NEXIUM [Suspect]
     Indication: GASTROOESOPHAGEAL REFLUX DISEASE
     Route: 048
     Dates: start: 20070429
  6. NEXIUM [Suspect]
     Indication: HIATUS HERNIA
     Route: 048
     Dates: start: 20070429
  7. PRILOSEC [Suspect]
     Indication: GASTROOESOPHAGEAL REFLUX DISEASE
     Route: 048
     Dates: start: 2000, end: 2012
  8. PRILOSEC [Suspect]
     Indication: HIATUS HERNIA
     Route: 048
     Dates: start: 2000, end: 2012
  9. PRILOSEC [Suspect]
     Indication: GASTROOESOPHAGEAL REFLUX DISEASE
     Route: 048
     Dates: start: 20111230
  10. PRILOSEC [Suspect]
     Indication: HIATUS HERNIA
     Route: 048
     Dates: start: 20111230
  11. ACIPHEX [Concomitant]
  12. PROTONIX [Concomitant]
  13. PREVACID [Concomitant]
     Indication: GASTROOESOPHAGEAL REFLUX DISEASE
     Dosage: AS NEEDED, ONCE A DAY
  14. PREVACID [Concomitant]
     Indication: GASTROOESOPHAGEAL REFLUX DISEASE
     Route: 048
     Dates: start: 20010925
  15. PREVID [Concomitant]
     Dates: start: 2000, end: 2012
  16. ZANTAC [Concomitant]
  17. TAGAMET [Concomitant]
  18. PEPCID [Concomitant]
  19. TAZAC [Concomitant]
  20. TUMS [Concomitant]
  21. ALKA-SELTZER [Concomitant]
  22. MILK OF MAGNESIA [Concomitant]
  23. GAVISCON [Concomitant]
  24. PEPTO BISMOL [Concomitant]
  25. ROLAIDS [Concomitant]
  26. MYLANTA [Concomitant]
  27. HYDROCODON/ APAP [Concomitant]
     Dosage: 5/325 TA
     Dates: start: 20060930
  28. NAPROXEN [Concomitant]
     Route: 048
     Dates: start: 20070831
  29. PROPOXY-N/ APAP [Concomitant]
     Dosage: 100-650 TA
     Dates: start: 20080227
  30. PROMETHAZIN / CODEINE [Concomitant]
     Route: 048
     Dates: start: 20080227
  31. OSMOPREP [Concomitant]
     Route: 048
     Dates: start: 20080724
  32. SUCRALFATE [Concomitant]
     Route: 048
     Dates: start: 20080724
  33. PROVIGIL [Concomitant]
     Route: 048
     Dates: start: 20090601
  34. PROPOXPHEN-APAP [Concomitant]
     Dosage: 10-650
     Dates: start: 20100205
  35. OXYCODONE-APAP [Concomitant]
     Dosage: 10-325 MG
     Dates: start: 20100327
  36. OXYCODONE-APAP [Concomitant]
     Dosage: 7.5-325 MG
  37. ZOLPIDEM TARTRATE [Concomitant]
  38. OXAPROZIN [Concomitant]
     Route: 048
  39. CITALOPRAM [Concomitant]
     Route: 048
     Dates: start: 20100809
  40. RANITIDINE [Concomitant]
     Route: 048
     Dates: start: 20100809
  41. CYMBALTA [Concomitant]
     Route: 048
     Dates: start: 20100912
  42. OXYCONTIN [Concomitant]
     Route: 048
     Dates: start: 20100920
  43. MECLIZINE [Concomitant]
     Route: 048
     Dates: start: 20120104
  44. DEXILANT [Concomitant]
     Route: 048
     Dates: start: 20120606
  45. MEPERIDINE [Concomitant]
     Route: 048
     Dates: start: 20020411
  46. TOLMETIN SODIUM [Concomitant]
     Route: 048
     Dates: start: 20021102
  47. LAMISIL [Concomitant]
     Route: 048
     Dates: start: 20060116
  48. IBUPROFEN [Concomitant]
     Route: 048
     Dates: start: 20070301
  49. HISTAMINE RECEPTOR AGONISTS [Concomitant]
     Dosage: AS NEEDED

REACTIONS (22)
  - Humerus fracture [Unknown]
  - Road traffic accident [Unknown]
  - Osteoporosis [Unknown]
  - Wrist fracture [Unknown]
  - Androgen deficiency [Unknown]
  - Arthritis [Unknown]
  - Arthrofibrosis [Unknown]
  - Deafness [Unknown]
  - Fall [Unknown]
  - Foot fracture [Unknown]
  - Gastric disorder [Unknown]
  - Osteoarthritis [Unknown]
  - Periarthritis [Unknown]
  - Pain in extremity [Unknown]
  - Rheumatoid arthritis [Unknown]
  - Rib fracture [Unknown]
  - Rotator cuff syndrome [Unknown]
  - Tinnitus [Unknown]
  - Arthralgia [Unknown]
  - Depression [Unknown]
  - Diarrhoea [Unknown]
  - Myalgia [Unknown]
